FAERS Safety Report 9069845 (Version 1)
Quarter: 2013Q1

REPORT INFORMATION
  Report Type: Report from Study
  Country: US (occurrence: US)
  Receive Date: 20130129
  Receipt Date: 20130129
  Transmission Date: 20140127
  Serious: No
  Sender: FDA-Public Use
  Company Number: US-ABBOTT-12P-163-0938459-00

PATIENT
  Age: 18 Year
  Sex: Male
  Weight: 99.88 kg

DRUGS (4)
  1. HUMIRA 40 MG/0.8 ML PEN [Suspect]
     Indication: RHEUMATOID ARTHRITIS
     Dates: start: 201012, end: 201105
  2. HUMIRA 40 MG/0.8 ML PEN [Suspect]
     Dates: start: 20120513
  3. METHOTREXATE [Suspect]
     Indication: RHEUMATOID ARTHRITIS
     Dosage: 3 PILLS
     Dates: start: 2010, end: 2011
  4. METHOTREXATE [Suspect]
     Dosage: 3 PILLS WEEKLY
     Dates: start: 20120513

REACTIONS (1)
  - Fatigue [Not Recovered/Not Resolved]
